FAERS Safety Report 17818358 (Version 3)
Quarter: 2020Q2

REPORT INFORMATION
  Report Type: Spontaneous
  Country: GR (occurrence: GR)
  Receive Date: 20200522
  Receipt Date: 20200618
  Transmission Date: 20200714
  Serious: Yes (Hospitalization)
  Sender: FDA-Public Use
  Company Number: GR-CELGENEUS-GRC-20200505427

PATIENT
  Age: 58 Year
  Sex: Male
  Weight: 84 kg

DRUGS (5)
  1. VALTREX [Concomitant]
     Active Substance: VALACYCLOVIR HYDROCHLORIDE
     Indication: ANTIVIRAL PROPHYLAXIS
     Route: 048
     Dates: start: 20190826
  2. BORTEZOMIB. [Concomitant]
     Active Substance: BORTEZOMIB
     Indication: PLASMA CELL MYELOMA
     Route: 058
     Dates: start: 20190829, end: 20200505
  3. INNOHEP [Concomitant]
     Active Substance: TINZAPARIN SODIUM
     Indication: THROMBOSIS PROPHYLAXIS
     Route: 058
     Dates: start: 20190829
  4. DEXAMETHASONE. [Suspect]
     Active Substance: DEXAMETHASONE
     Indication: PLASMA CELL MYELOMA
     Route: 048
     Dates: start: 20190829, end: 20200506
  5. LENALIDOMIDE [Suspect]
     Active Substance: LENALIDOMIDE
     Indication: PLASMA CELL MYELOMA
     Route: 048
     Dates: start: 20190829, end: 20200506

REACTIONS (2)
  - Anal abscess [Recovered/Resolved]
  - Pilonidal cyst [Recovered/Resolved]

NARRATIVE: CASE EVENT DATE: 20200507
